FAERS Safety Report 11648917 (Version 3)
Quarter: 2015Q4

REPORT INFORMATION
  Report Type: Spontaneous
  Country: GR (occurrence: GR)
  Receive Date: 20151021
  Receipt Date: 20151111
  Transmission Date: 20160304
  Serious: Yes (Other)
  Sender: FDA-Public Use
  Company Number: GR-BAXTER-2015BAX056591

PATIENT
  Age: 71 Year
  Sex: Female

DRUGS (22)
  1. AFINITOR [Suspect]
     Active Substance: EVEROLIMUS
     Indication: BREAST CANCER
     Dosage: REGIMEN 1
     Route: 065
     Dates: start: 201212
  2. AVASTIN [Suspect]
     Active Substance: BEVACIZUMAB
     Route: 065
     Dates: end: 20150302
  3. TAXOTERE [Suspect]
     Active Substance: DOCETAXEL
     Indication: BREAST CANCER
     Dosage: REGIMEN 1
     Route: 065
  4. AVASTIN [Suspect]
     Active Substance: BEVACIZUMAB
     Route: 065
     Dates: end: 201509
  5. PACLITAXEL. [Suspect]
     Active Substance: PACLITAXEL
     Dosage: REGIMEN 2
     Route: 065
     Dates: end: 20150203
  6. AVASTIN [Suspect]
     Active Substance: BEVACIZUMAB
     Indication: BREAST CANCER
     Dosage: REGIMEN 1
     Route: 065
     Dates: start: 201302, end: 201306
  7. PACLITAXEL. [Suspect]
     Active Substance: PACLITAXEL
     Dosage: REGIMEN 2
     Route: 065
     Dates: end: 20150302
  8. AROMASIN [Suspect]
     Active Substance: EXEMESTANE
     Indication: BREAST CANCER
     Dosage: REGIMEN 1
     Route: 065
     Dates: start: 201212
  9. ENDOXAN 1000 MG - POWDER FOR SOLUTION FOR INJECTION [Suspect]
     Active Substance: CYCLOPHOSPHAMIDE
     Dosage: REGIMEN 2
     Route: 065
     Dates: end: 201509
  10. CARBOPLATIN. [Suspect]
     Active Substance: CARBOPLATIN
     Dosage: REGIMEN 2
     Route: 065
     Dates: end: 20150203
  11. CARBOPLATIN. [Suspect]
     Active Substance: CARBOPLATIN
     Route: 065
     Dates: end: 20150302
  12. ENDOXAN 1000 MG - POWDER FOR SOLUTION FOR INJECTION [Suspect]
     Active Substance: CYCLOPHOSPHAMIDE
     Indication: BREAST CANCER
     Dosage: REGIMEN 1
     Route: 065
  13. CARBOPLATIN. [Suspect]
     Active Substance: CARBOPLATIN
     Indication: BREAST CANCER
     Dosage: REGIMEN 1
     Route: 065
     Dates: start: 201302, end: 201306
  14. AVASTIN [Suspect]
     Active Substance: BEVACIZUMAB
     Dosage: REGIMEN 2
     Route: 065
     Dates: end: 201410
  15. XELODA [Suspect]
     Active Substance: CAPECITABINE
     Indication: METASTASES TO BONE
  16. ZOMETA [Suspect]
     Active Substance: ZOLEDRONIC ACID
     Indication: BREAST CANCER
     Dosage: REGIMEN 1
     Route: 065
     Dates: end: 20150203
  17. PACLITAXEL. [Suspect]
     Active Substance: PACLITAXEL
     Indication: BREAST CANCER
     Dosage: REGIMEN 1
     Route: 065
     Dates: start: 201302, end: 201306
  18. XELODA [Suspect]
     Active Substance: CAPECITABINE
     Indication: BREAST CANCER
     Dosage: REGIMEN 1
     Route: 065
     Dates: end: 201410
  19. ZOMETA [Suspect]
     Active Substance: ZOLEDRONIC ACID
     Dosage: REGIMEN 2
     Route: 065
     Dates: end: 201509
  20. FEMARA [Suspect]
     Active Substance: LETROZOLE
     Indication: BREAST CANCER
     Dosage: REGIMEN 1
     Route: 065
  21. AVASTIN [Suspect]
     Active Substance: BEVACIZUMAB
     Dosage: REGIMEN 3
     Route: 065
     Dates: end: 20150203
  22. ZOMETA [Suspect]
     Active Substance: ZOLEDRONIC ACID
     Dosage: REGIMEN 1
     Route: 065
     Dates: end: 20150302

REACTIONS (4)
  - Metastases to bone [Unknown]
  - No therapeutic response [Unknown]
  - Malignant neoplasm progression [Unknown]
  - Metastases to liver [Unknown]

NARRATIVE: CASE EVENT DATE: 201410
